FAERS Safety Report 4752595-6 (Version None)
Quarter: 2005Q3

REPORT INFORMATION
  Report Type: 
  Country: None (occurrence: None)
  Receive Date: 20050824
  Receipt Date: 20050805
  Transmission Date: 20060218
  Serious: Yes (Other)
  Sender: FDA-Public Use
  Company Number: USA0508104752

PATIENT
  Age: 51 Year
  Sex: Female

DRUGS (1)
  1. HUMATROPE (SOMATROPIN) [Suspect]
     Dosage: 6 MG
     Dates: start: 20040819, end: 20050805

REACTIONS (1)
  - ACUTE LYMPHOCYTIC LEUKAEMIA [None]
